FAERS Safety Report 20563461 (Version 1)
Quarter: 2022Q1

REPORT INFORMATION
  Report Type: Spontaneous
  Country: AU (occurrence: AU)
  Receive Date: 20220308
  Receipt Date: 20220308
  Transmission Date: 20220423
  Serious: Yes (Other)
  Sender: FDA-Public Use
  Company Number: AU-PFIZER INC-202101577108

PATIENT
  Age: 78 Year
  Sex: Male

DRUGS (1)
  1. CAVERJECT IMPULSE [Suspect]
     Active Substance: ALPROSTADIL
     Indication: Erectile dysfunction
     Dosage: 10 UG

REACTIONS (4)
  - Product administered at inappropriate site [Unknown]
  - Vessel puncture site haematoma [Unknown]
  - Device use issue [Unknown]
  - Drug ineffective [Unknown]
